FAERS Safety Report 16564800 (Version 1)
Quarter: 2019Q3

REPORT INFORMATION
  Report Type: Spontaneous
  Country: JP (occurrence: JP)
  Receive Date: 20190712
  Receipt Date: 20190712
  Transmission Date: 20191004
  Serious: Yes (Hospitalization, Other)
  Sender: FDA-Public Use
  Company Number: JP-SAKK-2019SA185085AA

PATIENT
  Age: 71 Year
  Sex: Male
  Weight: 58.4 kg

DRUGS (3)
  1. ONETAXOTERE 20MG [Suspect]
     Active Substance: DOCETAXEL
     Indication: MALIGNANT NEOPLASM OF UNKNOWN PRIMARY SITE
     Dosage: 90 MG
     Route: 041
     Dates: start: 20141225, end: 20141225
  2. FLUOROURACIL. [Suspect]
     Active Substance: FLUOROURACIL
     Indication: MALIGNANT NEOPLASM OF UNKNOWN PRIMARY SITE
     Dosage: 930 MG
     Route: 065
     Dates: start: 20141225, end: 20141229
  3. CISPLATIN. [Suspect]
     Active Substance: CISPLATIN
     Indication: MALIGNANT NEOPLASM OF UNKNOWN PRIMARY SITE
     Dosage: 100 MG
     Route: 065
     Dates: start: 20141225, end: 20141225

REACTIONS (1)
  - Gastric ulcer perforation [Recovered/Resolved with Sequelae]

NARRATIVE: CASE EVENT DATE: 20150116
